FAERS Safety Report 4932114-1 (Version None)
Quarter: 2006Q1

REPORT INFORMATION
  Report Type: 
  Country: None (occurrence: None)
  Receive Date: 20060303
  Receipt Date: 20060220
  Transmission Date: 20060701
  Serious: Yes (Other)
  Sender: FDA-Public Use
  Company Number: US-ROCHE-437058

PATIENT
  Age: 21 Year
  Sex: Male

DRUGS (3)
  1. CELLCEPT [Suspect]
     Indication: LUPUS NEPHRITIS
     Route: 065
     Dates: start: 20060109
  2. CELLCEPT [Suspect]
     Route: 065
  3. STEROIDS NOS [Concomitant]

REACTIONS (1)
  - HEPATIC CIRRHOSIS [None]
